FAERS Safety Report 20648031 (Version 6)
Quarter: 2022Q4

REPORT INFORMATION
  Report Type: Spontaneous
  Country: BR (occurrence: BR)
  Receive Date: 20220329
  Receipt Date: 20221117
  Transmission Date: 20230113
  Serious: Yes (Other)
  Sender: FDA-Public Use
  Company Number: BR-GLAXOSMITHKLINE-BR2022AMR052482

PATIENT

DRUGS (6)
  1. BENLYSTA [Suspect]
     Active Substance: BELIMUMAB
     Indication: Systemic lupus erythematosus
     Dosage: 120 MG 7 TO 8 BOXES OF 120 MG,DEPENDING ON WEIGHT ON THE DAY
     Route: 042
     Dates: start: 20211007
  2. BENLYSTA [Suspect]
     Active Substance: BELIMUMAB
     Dosage: 400 MG
     Route: 042
     Dates: start: 202109
  3. METHOTREXATE [Suspect]
     Active Substance: METHOTREXATE
     Indication: Systemic lupus erythematosus
     Dosage: 6 DF, WE 1 DOSE OF 6 TABLETS OF 2.5 MG, ONCE A WEEK
  4. MYCOPHENOLIC ACID [Suspect]
     Active Substance: MYCOPHENOLIC ACID
     Indication: Systemic lupus erythematosus
     Dosage: 3 DF, BID ^IN THE FIRST WEEK 3 TABLETS IN THE MORNING AND 3 IN THE EVENING
  5. MYCOPHENOLIC ACID [Suspect]
     Active Substance: MYCOPHENOLIC ACID
     Dosage: 2 DF, BID, ^IN THE SECOND WEEK 2 TABLETS IN THE MORNING AND THE SAME DOSAGE IN THE EVENING
  6. MYCOPHENOLIC ACID [Suspect]
     Active Substance: MYCOPHENOLIC ACID
     Dosage: 1 DF, BID, ^IN THE LAST WEEK, TOOK 1 TABLET IN THE MORNING AND 1 IN THE EVENING

REACTIONS (16)
  - Systemic lupus erythematosus [Unknown]
  - Swelling [Unknown]
  - COVID-19 [Recovered/Resolved]
  - Cough [Recovered/Resolved]
  - Memory impairment [Unknown]
  - Influenza [Unknown]
  - Depression [Not Recovered/Not Resolved]
  - Discouragement [Not Recovered/Not Resolved]
  - Patient isolation [Not Recovered/Not Resolved]
  - Anxiety [Not Recovered/Not Resolved]
  - Wound [Not Recovered/Not Resolved]
  - Arthralgia [Not Recovered/Not Resolved]
  - Joint swelling [Not Recovered/Not Resolved]
  - Condition aggravated [Not Recovered/Not Resolved]
  - Product dose omission issue [Unknown]
  - Inappropriate schedule of product administration [Unknown]

NARRATIVE: CASE EVENT DATE: 20220101
